FAERS Safety Report 10935424 (Version 9)
Quarter: 2016Q2

REPORT INFORMATION
  Report Type: Spontaneous
  Country: US (occurrence: US)
  Receive Date: 20150320
  Receipt Date: 20160615
  Transmission Date: 20160815
  Serious: Yes (Hospitalization, Disabling, Other)
  Sender: FDA-Public Use
  Company Number: US-009507513-1503USA009018

PATIENT
  Sex: Female
  Weight: 61.22 kg

DRUGS (10)
  1. ALENDRONATE SODIUM. [Suspect]
     Active Substance: ALENDRONATE SODIUM
     Indication: OSTEOPOROSIS
     Dosage: 70 MG, UNKNOWN
     Route: 048
     Dates: start: 20100312, end: 20121226
  2. ALENDRONATE SODIUM. [Suspect]
     Active Substance: ALENDRONATE SODIUM
     Dosage: UNK
     Dates: start: 200907, end: 201303
  3. FOSAMAX [Suspect]
     Active Substance: ALENDRONATE SODIUM
     Indication: OSTEOPOROSIS
     Dosage: 70 MG, UNKNOWN
     Route: 048
     Dates: start: 1996, end: 2012
  4. FOSAMAX [Suspect]
     Active Substance: ALENDRONATE SODIUM
     Dosage: 70 MG, UNK
     Route: 048
     Dates: end: 20080818
  5. ALENDRONATE SODIUM. [Suspect]
     Active Substance: ALENDRONATE SODIUM
     Indication: OSTEOPOROSIS
     Dosage: 70 MG, UNKNOWN
     Route: 048
     Dates: end: 2009
  6. OMEGA-3 MARINE TRIGLYCERIDES [Concomitant]
     Active Substance: FISH OIL
     Indication: PRODUCT USED FOR UNKNOWN INDICATION
     Dosage: UNK
     Dates: start: 2007
  7. VITAMINS (UNSPECIFIED) [Suspect]
     Active Substance: VITAMINS
     Indication: PRODUCT USED FOR UNKNOWN INDICATION
     Dosage: UNK
     Route: 065
     Dates: start: 1999
  8. FOSAMAX [Suspect]
     Active Substance: ALENDRONATE SODIUM
     Dosage: 70 MG, QW
     Route: 048
     Dates: start: 20090218, end: 2012
  9. FOSAMAX [Suspect]
     Active Substance: ALENDRONATE SODIUM
     Dosage: UNK
     Route: 048
     Dates: start: 1996, end: 200906
  10. VITAMIN D [Concomitant]
     Active Substance: CHOLECALCIFEROL
     Indication: PRODUCT USED FOR UNKNOWN INDICATION
     Dosage: UNK
     Route: 065
     Dates: start: 1999

REACTIONS (23)
  - Joint injury [Unknown]
  - Low turnover osteopathy [Unknown]
  - Spinal osteoarthritis [Unknown]
  - Arthralgia [Unknown]
  - Rotator cuff syndrome [Unknown]
  - Skin abrasion [Unknown]
  - Fall [Unknown]
  - Pathological fracture [Unknown]
  - Joint dislocation [Recovering/Resolving]
  - Fall [Unknown]
  - Spinal compression fracture [Unknown]
  - Fracture malunion [Unknown]
  - Ankle fracture [Recovered/Resolved]
  - Renal disorder [Unknown]
  - Impaired healing [Unknown]
  - Tooth extraction [Unknown]
  - Hypertension [Unknown]
  - Hyperlipidaemia [Unknown]
  - Femur fracture [Recovering/Resolving]
  - Cholecystectomy [Unknown]
  - Device breakage [Unknown]
  - Large intestine polyp [Unknown]
  - Forearm fracture [Unknown]

NARRATIVE: CASE EVENT DATE: 2011
